FAERS Safety Report 23436372 (Version 2)
Quarter: 2024Q1

REPORT INFORMATION
  Report Type: Spontaneous
  Country: PL (occurrence: PL)
  Receive Date: 20240124
  Receipt Date: 20240315
  Transmission Date: 20240410
  Serious: Yes (Hospitalization, Other)
  Sender: FDA-Public Use
  Company Number: PL-LESVI-2023006332

PATIENT
  Age: 47 Year
  Sex: Female

DRUGS (5)
  1. AMOXICILLIN [Suspect]
     Active Substance: AMOXICILLIN
     Indication: Toxic epidermal necrolysis
     Dosage: 1 GRAM, ONCE A DAY
     Route: 065
  2. CYCLOSPORINE [Suspect]
     Active Substance: CYCLOSPORINE
     Indication: Toxic epidermal necrolysis
     Dosage: 250 MILLIGRAM, ONCE A DAY
     Route: 065
  3. LAMOTRIGINE [Suspect]
     Active Substance: LAMOTRIGINE
     Indication: Epilepsy
     Dosage: 50 MILLIGRAM, ONCE A DAY ((50 MG/D 3 WEEKS BEFORE ADMISSION))
     Route: 065
  4. LAMOTRIGINE [Suspect]
     Active Substance: LAMOTRIGINE
     Indication: Bipolar disorder
  5. DICLOFENAC [Suspect]
     Active Substance: DICLOFENAC
     Indication: Toxic epidermal necrolysis
     Dosage: UNK
     Route: 048

REACTIONS (19)
  - Toxic epidermal necrolysis [Recovered/Resolved]
  - Rash [Recovering/Resolving]
  - Pyrexia [Recovering/Resolving]
  - Drug ineffective [Unknown]
  - Purulent discharge [Recovering/Resolving]
  - Monocytosis [Recovering/Resolving]
  - Neutrophilia [Recovering/Resolving]
  - Skin erosion [Recovering/Resolving]
  - Eye irritation [Recovering/Resolving]
  - Eosinopenia [Recovering/Resolving]
  - Condition aggravated [Recovering/Resolving]
  - Blister [Recovering/Resolving]
  - Lymphadenopathy [Recovering/Resolving]
  - Skin exfoliation [Recovering/Resolving]
  - Vision blurred [Recovering/Resolving]
  - Oropharyngeal pain [Recovering/Resolving]
  - Conjunctival haemorrhage [Recovering/Resolving]
  - Ulcer [Recovering/Resolving]
  - Rash maculo-papular [Recovering/Resolving]
